FAERS Safety Report 15295707 (Version 4)
Quarter: 2019Q3

REPORT INFORMATION
  Report Type: Spontaneous
  Country: US (occurrence: US)
  Receive Date: 20180820
  Receipt Date: 20190822
  Transmission Date: 20191004
  Serious: No
  Sender: FDA-Public Use
  Company Number: US-SA-2018SA223253

PATIENT
  Age: 45 Year
  Sex: Female

DRUGS (3)
  1. PRALUENT [Suspect]
     Active Substance: ALIROCUMAB
     Indication: HYPERLIPIDAEMIA
     Dosage: 75 MG, QOW
     Route: 058
     Dates: start: 20180607
  2. PRALUENT [Suspect]
     Active Substance: ALIROCUMAB
     Indication: BLOOD CHOLESTEROL INCREASED
  3. PRALUENT [Suspect]
     Active Substance: ALIROCUMAB
     Indication: LIPOPROTEIN ABNORMAL

REACTIONS (6)
  - Injection site pruritus [Not Recovered/Not Resolved]
  - Product dose omission [Unknown]
  - Injection site dryness [Recovering/Resolving]
  - Injection site exfoliation [Not Recovered/Not Resolved]
  - Injection site eczema [Recovering/Resolving]
  - Urticaria [Unknown]

NARRATIVE: CASE EVENT DATE: 2018
